FAERS Safety Report 11136212 (Version 1)
Quarter: 2015Q2

REPORT INFORMATION
  Report Type: Spontaneous
  Country: US (occurrence: US)
  Receive Date: 20150526
  Receipt Date: 20150526
  Transmission Date: 20150821
  Serious: Yes (Other)
  Sender: FDA-Public Use
  Company Number: US-PFIZER INC-2015172388

PATIENT
  Sex: Female

DRUGS (2)
  1. LYRICA [Suspect]
     Active Substance: PREGABALIN
     Indication: DIABETES MELLITUS
     Dosage: UNK
  2. GABAPENTIN. [Suspect]
     Active Substance: GABAPENTIN
     Indication: DIABETES MELLITUS
     Dosage: UNK

REACTIONS (8)
  - Depression [Unknown]
  - Somnolence [Unknown]
  - Blindness [Unknown]
  - Visual impairment [Unknown]
  - Pain [Unknown]
  - Loss of consciousness [Unknown]
  - Suicidal ideation [Unknown]
  - Stress [Unknown]
